FAERS Safety Report 21618313 (Version 3)
Quarter: 2023Q1

REPORT INFORMATION
  Report Type: Spontaneous
  Country: US (occurrence: US)
  Receive Date: 20221119
  Receipt Date: 20230107
  Transmission Date: 20230417
  Serious: No
  Sender: FDA-Public Use
  Company Number: US-002147023-NVSC2022US260790

PATIENT
  Sex: Male

DRUGS (1)
  1. AMOXICILLIN\CLAVULANATE POTASSIUM [Suspect]
     Active Substance: AMOXICILLIN\CLAVULANATE POTASSIUM
     Indication: Sinusitis
     Dosage: UNK
     Route: 065
     Dates: start: 20221102

REACTIONS (6)
  - Epistaxis [Recovered/Resolved]
  - Hot flush [Not Recovered/Not Resolved]
  - Feeling abnormal [Unknown]
  - Weight increased [Unknown]
  - Dizziness [Unknown]
  - Sinusitis [Not Recovered/Not Resolved]
